FAERS Safety Report 4811742-8 (Version None)
Quarter: 2005Q4

REPORT INFORMATION
  Report Type: 
  Country: None (occurrence: None)
  Receive Date: 20051025
  Receipt Date: 20051011
  Transmission Date: 20060501
  Serious: Yes (Other)
  Sender: FDA-Public Use
  Company Number: US-2005-021375

PATIENT
  Age: 46 Year
  Sex: Female

DRUGS (2)
  1. FLUDARA [Suspect]
     Indication: CHRONIC LYMPHOCYTIC LEUKAEMIA
  2. RITUXIMAB (RITUXIMAB) [Suspect]
     Indication: CHRONIC LYMPHOCYTIC LEUKAEMIA

REACTIONS (3)
  - ACUTE PROMYELOCYTIC LEUKAEMIA [None]
  - BLOOD LACTATE DEHYDROGENASE INCREASED [None]
  - FIBRIN D DIMER INCREASED [None]
